FAERS Safety Report 5050583-6 (Version None)
Quarter: 2006Q4

REPORT INFORMATION
  Report Type: 
  Country: None (occurrence: None)
  Receive Date: 20060713
  Receipt Date: 20060710
  Transmission Date: 20070319
  Serious: Yes (Hospitalization)
  Sender: FDA-Public Use
  Company Number: FR-GLAXOSMITHKLINE-B0430313A

PATIENT
  Age: 62 Year
  Sex: Male

DRUGS (10)
  1. VALACYCLOVIR HCL [Suspect]
     Indication: HERPES ZOSTER
     Dosage: 500MG SIX TIMES PER DAY
     Route: 048
     Dates: start: 20060610, end: 20060615
  2. AMIODARONE HCL [Concomitant]
  3. CARDENSIEL [Concomitant]
  4. TRIATEC [Concomitant]
  5. PREVISCAN [Concomitant]
  6. FUROSEMIDE [Concomitant]
  7. KALEORID [Concomitant]
  8. LIPANTHYL [Concomitant]
  9. EQUANIL [Concomitant]
  10. DIMETANE [Concomitant]

REACTIONS (3)
  - ANURIA [None]
  - BACK PAIN [None]
  - RENAL FAILURE ACUTE [None]
